FAERS Safety Report 16061683 (Version 1)
Quarter: 2019Q1

REPORT INFORMATION
  Report Type: Spontaneous
  Country: US (occurrence: US)
  Receive Date: 20190312
  Receipt Date: 20190312
  Transmission Date: 20190418
  Serious: No
  Sender: FDA-Public Use
  Company Number: US-PFIZER INC-2019107334

PATIENT
  Age: 68 Year
  Sex: Female

DRUGS (3)
  1. ERYTHROMYCIN. [Suspect]
     Active Substance: ERYTHROMYCIN
     Dosage: UNK
  2. AMOXICILLIN. [Suspect]
     Active Substance: AMOXICILLIN
     Dosage: UNK
  3. TERRAMYCIN [Suspect]
     Active Substance: OXYTETRACYCLINE\OXYTETRACYCLINE HYDROCHLORIDE
     Dosage: UNK

REACTIONS (2)
  - Drug hypersensitivity [Unknown]
  - Rash [Unknown]
